FAERS Safety Report 24212622 (Version 1)
Quarter: 2024Q3

REPORT INFORMATION
  Report Type: Spontaneous
  Country: US (occurrence: US)
  Receive Date: 20240815
  Receipt Date: 20240815
  Transmission Date: 20241016
  Serious: No
  Sender: HIKMA
  Company Number: US-HIKMA PHARMACEUTICALS USA INC.-US-H14001-24-06325

PATIENT

DRUGS (2)
  1. REGADENOSON [Suspect]
     Active Substance: REGADENOSON
     Indication: Electrocardiogram abnormal
     Dosage: 5 MILLILITER
  2. REGADENOSON [Suspect]
     Active Substance: REGADENOSON
     Indication: Hypertension

REACTIONS (1)
  - Abdominal pain upper [Unknown]
